FAERS Safety Report 4568446-9 (Version None)
Quarter: 2005Q1

REPORT INFORMATION
  Report Type: 
  Country: None (occurrence: None)
  Receive Date: 20050131
  Receipt Date: 20050118
  Transmission Date: 20050727
  Serious: Yes (Death, Hospitalization)
  Sender: FDA-Public Use
  Company Number: K200500115

PATIENT
  Age: 76 Year
  Sex: Female

DRUGS (11)
  1. SEPTRA [Suspect]
     Indication: UPPER RESPIRATORY TRACT INFLAMMATION
     Dosage: 80/400 MG, BID
  2. METHOTREXATE [Suspect]
     Indication: RHEUMATOID ARTHRITIS
     Dosage: 5 MG, QW
  3. CAPTOPRIL [Concomitant]
  4. FUROSEMIDE (FUROSEMIDE) [Concomitant]
  5. CHLORTHALIDONE [Concomitant]
  6. ALENDRONATE SODIUM [Concomitant]
  7. ALPHA D3 (ALFACALCIDOL) [Concomitant]
  8. OMEPRAZOLE [Concomitant]
  9. VITAMIN E [Concomitant]
  10. PREDNISONE [Concomitant]
  11. OXAZEPAM [Concomitant]

REACTIONS (15)
  - BACTERAEMIA [None]
  - BLOOD PHOSPHORUS INCREASED [None]
  - CANDIDIASIS [None]
  - DRUG INTERACTION [None]
  - ECCHYMOSIS [None]
  - EPISTAXIS [None]
  - FUNGAL INFECTION [None]
  - GINGIVAL BLEEDING [None]
  - INTRA-ABDOMINAL HAEMORRHAGE [None]
  - MULTI-ORGAN FAILURE [None]
  - PALLOR [None]
  - PANCYTOPENIA [None]
  - RENAL FAILURE [None]
  - THORACIC HAEMORRHAGE [None]
  - VIRAL INFECTION [None]
